FAERS Safety Report 5981506-0 (Version None)
Quarter: 2008Q4

REPORT INFORMATION
  Report Type: 
  Country: None (occurrence: None)
  Receive Date: 20081126
  Receipt Date: 20071213
  Transmission Date: 20090506
  Serious: Yes (Other)
  Sender: FDA-Public Use
  Company Number: 2007BH009799

PATIENT
  Age: 61 Year
  Sex: Female

DRUGS (4)
  1. DIANEAL [Suspect]
     Indication: RENAL FAILURE CHRONIC
     Dosage: 15 L;EVERY DAY;IP
     Route: 033
     Dates: start: 20070101, end: 20071201
  2. DIANEAL [Suspect]
     Indication: RENAL FAILURE CHRONIC
     Dosage: 15 L;AS NEEDED;IP
     Route: 033
     Dates: start: 20070601
  3. NEPHROCAPS [Concomitant]
  4. ANTI-REJECTION DRUGS [Concomitant]

REACTIONS (1)
  - PERITONITIS [None]
